FAERS Safety Report 4712484-X (Version None)
Quarter: 2005Q2

REPORT INFORMATION
  Report Type: 
  Country: None (occurrence: None)
  Receive Date: 20050629
  Receipt Date: 20050309
  Transmission Date: 20051028
  Serious: No
  Sender: FDA-Public Use
  Company Number: 05P-163-0293298-00

PATIENT
  Age: 82 Year
  Sex: Female
  Weight: 65.7716 kg

DRUGS (11)
  1. HUMIRA [Suspect]
     Indication: RHEUMATOID ARTHRITIS
     Dosage: 40 MG, SUBCUTANEOUS
     Route: 058
     Dates: start: 20040101, end: 20050224
  2. VERAPAMIL HYDROCHLORIDE [Concomitant]
  3. DIGOXIN [Concomitant]
  4. ASPIRIN [Concomitant]
  5. GLIBENCLAMIDE [Concomitant]
  6. GLUCOPHAGE [Concomitant]
  7. VITAMINS [Concomitant]
  8. CALCIUM GLUCONATE [Concomitant]
  9. FOLIC ACID [Concomitant]
  10. METHOTREXATE [Concomitant]
  11. GABAPENTIN [Concomitant]

REACTIONS (2)
  - PRURITUS [None]
  - RASH [None]
